FAERS Safety Report 19300774 (Version 1)
Quarter: 2021Q2

REPORT INFORMATION
  Report Type: Spontaneous
  Country: JP (occurrence: JP)
  Receive Date: 20210524
  Receipt Date: 20210524
  Transmission Date: 20210717
  Serious: Yes (Death, Disabling)
  Sender: FDA-Public Use
  Company Number: JP-UCBSA-2021024231

PATIENT
  Age: 76 Year
  Sex: Female
  Weight: 35 kg

DRUGS (37)
  1. SOLDEM 3A [Concomitant]
     Active Substance: CARBOHYDRATES\POTASSIUM CHLORIDE\SODIUM CHLORIDE\SODIUM LACTATE
     Dosage: 500 MILLILITER, ONCE DAILY (QD)
     Dates: start: 20210207, end: 20210216
  2. SOLYUGEN F [Concomitant]
     Active Substance: CALCIUM CHLORIDE\POTASSIUM CHLORIDE\SODIUM ACETATE\SODIUM CHLORIDE
     Indication: PRODUCT USED FOR UNKNOWN INDICATION
     Dates: start: 20210130, end: 20210131
  3. GLUCOSE [Concomitant]
     Active Substance: DEXTROSE
     Dosage: 40 MILLILITER, ONCE DAILY (QD)
     Route: 042
     Dates: start: 20210202, end: 20210202
  4. GLUCOSE [Concomitant]
     Active Substance: DEXTROSE
     Dosage: 40 MILLILITER, ONCE DAILY (QD)
     Route: 042
     Dates: start: 20210206, end: 20210206
  5. HISHIPHAGENC [Concomitant]
     Active Substance: AMMONIUM GLYCYRRHIZATE\CYSTEINE HYDROCHLORIDE\GLYCINE
     Indication: PRODUCT USED FOR UNKNOWN INDICATION
     Route: 042
     Dates: start: 20210202, end: 20210215
  6. EXCEGRAN [Suspect]
     Active Substance: ZONISAMIDE
     Dosage: 25 MILLIGRAM, ONCE DAILY (QD)
     Route: 051
     Dates: start: 20210130, end: 20210203
  7. SOLDEM 3A [Concomitant]
     Active Substance: CARBOHYDRATES\POTASSIUM CHLORIDE\SODIUM CHLORIDE\SODIUM LACTATE
     Indication: PRODUCT USED FOR UNKNOWN INDICATION
     Dates: start: 20210126, end: 20210126
  8. DOPASTON [Concomitant]
     Active Substance: LEVODOPA
     Indication: PRODUCT USED FOR UNKNOWN INDICATION
     Dates: start: 20210202, end: 20210215
  9. INOVAN [DOPAMINE HYDROCHLORIDE] [Concomitant]
     Indication: PRODUCT USED FOR UNKNOWN INDICATION
     Dates: start: 20210210, end: 20210215
  10. LOSARTAN POTASSIUM. [Concomitant]
     Active Substance: LOSARTAN POTASSIUM
     Indication: PRODUCT USED FOR UNKNOWN INDICATION
     Route: 048
     Dates: start: 20201121, end: 20201229
  11. PLAVIX [Concomitant]
     Active Substance: CLOPIDOGREL BISULFATE
     Indication: PRODUCT USED FOR UNKNOWN INDICATION
     Route: 048
     Dates: start: 20201216, end: 20210203
  12. SOLYUGEN G [Concomitant]
     Indication: PRODUCT USED FOR UNKNOWN INDICATION
     Dates: start: 20210201, end: 20210205
  13. SOLYUGEN G [Concomitant]
     Dosage: 500 MILLILITER, ONCE DAILY (QD)
     Dates: start: 20210207, end: 20210213
  14. GLUCOSE [Concomitant]
     Active Substance: DEXTROSE
     Dosage: 40 MILLILITER, ONCE DAILY (QD)
     Route: 042
     Dates: start: 20210204, end: 20210204
  15. E KEPPRA [Suspect]
     Active Substance: LEVETIRACETAM
     Indication: EPILEPSY
     Dosage: 500 MILLIGRAM, 2X/DAY (BID)
     Route: 041
     Dates: start: 20210203, end: 20210215
  16. RIZE [CLOTIAZEPAM] [Concomitant]
     Active Substance: CLOTIAZEPAM
     Indication: PRODUCT USED FOR UNKNOWN INDICATION
     Route: 048
     Dates: start: 20201120, end: 20210127
  17. BROTIZOLAM [Concomitant]
     Active Substance: BROTIZOLAM
     Indication: PRODUCT USED FOR UNKNOWN INDICATION
     Route: 048
     Dates: start: 20201203, end: 20210127
  18. GLUCOSE [Concomitant]
     Active Substance: DEXTROSE
     Dosage: 120 MILLILITER, ONCE DAILY (QD)
     Route: 042
     Dates: start: 20210214, end: 20210215
  19. YOKUKANSAN [Concomitant]
     Active Substance: HERBALS
     Indication: PRODUCT USED FOR UNKNOWN INDICATION
     Route: 048
     Dates: start: 20201120, end: 20210127
  20. LOSARTAN POTASSIUM. [Concomitant]
     Active Substance: LOSARTAN POTASSIUM
     Dosage: 50 MILLIGRAM, ONCE DAILY (QD)
     Route: 048
     Dates: start: 20210106, end: 20210127
  21. GLUCOSE [Concomitant]
     Active Substance: DEXTROSE
     Indication: PRODUCT USED FOR UNKNOWN INDICATION
     Route: 042
     Dates: start: 20210130, end: 20210131
  22. GLUCOSE [Concomitant]
     Active Substance: DEXTROSE
     Dosage: 80 MILLILITER, ONCE DAILY (QD)
     Route: 042
     Dates: start: 20210201, end: 20210201
  23. OMEPRAZOLE SODIUM [Concomitant]
     Active Substance: OMEPRAZOLE SODIUM
     Indication: PRODUCT USED FOR UNKNOWN INDICATION
     Dates: start: 20210210, end: 20210215
  24. OMEPRAZOLE SODIUM [Concomitant]
     Active Substance: OMEPRAZOLE SODIUM
     Dosage: 20 MILLIGRAM
     Route: 042
     Dates: start: 20210210, end: 20210210
  25. PREDONINE [PREDNISOLONE ACETATE] [Concomitant]
     Active Substance: PREDNISOLONE ACETATE
     Indication: PRODUCT USED FOR UNKNOWN INDICATION
     Dates: start: 20210213, end: 20210215
  26. EXCEGRAN [Suspect]
     Active Substance: ZONISAMIDE
     Dosage: 25 MILLIGRAM, ONCE DAILY (QD)
     Route: 051
     Dates: start: 20210206, end: 20210215
  27. TAZOPIPE [Suspect]
     Active Substance: PIPERACILLIN SODIUM\TAZOBACTAM SODIUM
     Indication: PNEUMONIA
     Dosage: 4.5 GRAM, 3X/DAY (TID)
     Route: 041
     Dates: start: 20210126, end: 20210202
  28. ASPARA POTASSIUM [Concomitant]
     Active Substance: POTASSIUM ASPARTATE
     Indication: PRODUCT USED FOR UNKNOWN INDICATION
     Route: 048
     Dates: start: 20210115, end: 20210127
  29. SOLDEM 3A [Concomitant]
     Active Substance: CARBOHYDRATES\POTASSIUM CHLORIDE\SODIUM CHLORIDE\SODIUM LACTATE
     Dosage: 1000 MILLILITER, ONCE DAILY (QD)
     Dates: start: 20210127, end: 20210206
  30. ISOTONIC SODIUM CHLORIDE SOLUTION [Concomitant]
     Active Substance: SODIUM CHLORIDE
     Indication: PRODUCT USED FOR UNKNOWN INDICATION
     Dates: start: 20210202, end: 20210215
  31. CERCINE [Concomitant]
     Active Substance: DIAZEPAM
     Indication: PRODUCT USED FOR UNKNOWN INDICATION
     Route: 042
     Dates: start: 20210203, end: 20210203
  32. EXCEGRAN [Suspect]
     Active Substance: ZONISAMIDE
     Indication: PARKINSON^S DISEASE
     Dosage: 25 MILLIGRAM, ONCE DAILY (QD)
     Route: 048
     Dates: start: 20201120, end: 20201201
  33. MENESIT [Concomitant]
     Active Substance: CARBIDOPA\LEVODOPA
     Indication: PRODUCT USED FOR UNKNOWN INDICATION
     Route: 048
     Dates: start: 20201202, end: 20210203
  34. TRERIEF [Concomitant]
     Active Substance: ZONISAMIDE
     Indication: PRODUCT USED FOR UNKNOWN INDICATION
     Route: 048
     Dates: start: 20201202, end: 20210129
  35. KCL CORRECTIVE [Concomitant]
     Indication: PRODUCT USED FOR UNKNOWN INDICATION
     Dates: start: 20210130, end: 20210205
  36. GLUCOSE [Concomitant]
     Active Substance: DEXTROSE
     Dosage: 80 MILLILITER, ONCE DAILY (QD)
     Route: 042
     Dates: start: 20210211, end: 20210213
  37. IRRADIATED RED BLOOD CELLS?LEUKOCYTES REDUCED [Concomitant]
     Active Substance: HUMAN RED BLOOD CELL
     Indication: PRODUCT USED FOR UNKNOWN INDICATION
     Dates: start: 20210210, end: 20210210

REACTIONS (2)
  - Liver disorder [Fatal]
  - Multiple organ dysfunction syndrome [Fatal]

NARRATIVE: CASE EVENT DATE: 20210202
